FAERS Safety Report 16573770 (Version 2)
Quarter: 2021Q4

REPORT INFORMATION
  Report Type: Report from Study
  Country: ES (occurrence: ES)
  Receive Date: 20190715
  Receipt Date: 20211117
  Transmission Date: 20220303
  Serious: Yes (Other)
  Sender: FDA-Public Use
  Company Number: ES-GILEAD-2019-0387238

PATIENT
  Age: 58 Year
  Sex: Male

DRUGS (5)
  1. TENOFOVIR [Suspect]
     Active Substance: TENOFOVIR
     Indication: Hepatitis B
     Dosage: UNK
     Route: 065
     Dates: start: 201006
  2. ACETAMINOPHEN [Concomitant]
     Active Substance: ACETAMINOPHEN
     Dosage: UNK
  3. PRODERMA [Concomitant]
     Indication: Rosacea
     Dosage: 100 MILLIGRAM, QD
  4. PRODERMA [Concomitant]
     Indication: Rhinophyma
  5. PANTOPRAZOLE SODIUM [Concomitant]
     Active Substance: PANTOPRAZOLE SODIUM
     Dosage: UNK

REACTIONS (3)
  - Tongue neoplasm malignant stage unspecified [Unknown]
  - Renal impairment [Not Recovered/Not Resolved]
  - Hypophosphataemia [Not Recovered/Not Resolved]
